FAERS Safety Report 17348229 (Version 2)
Quarter: 2020Q3

REPORT INFORMATION
  Report Type: Spontaneous
  Country: US (occurrence: US)
  Receive Date: 20200130
  Receipt Date: 20200929
  Transmission Date: 20201102
  Serious: No
  Sender: FDA-Public Use
  Company Number: US-PFIZER INC-2020038165

PATIENT
  Age: 59 Year
  Sex: Male

DRUGS (2)
  1. XELJANZ [Suspect]
     Active Substance: TOFACITINIB CITRATE
     Dosage: 5 MG, UNK
     Dates: start: 20191201
  2. XELJANZ [Suspect]
     Active Substance: TOFACITINIB CITRATE
     Dosage: 5 MG, UNK
     Dates: start: 20200124

REACTIONS (8)
  - Post procedural infection [Unknown]
  - Skin lesion [Unknown]
  - Seborrhoea [Unknown]
  - Pain [Unknown]
  - Acne [Unknown]
  - Skin disorder [Unknown]
  - Chest pain [Unknown]
  - Scar [Unknown]
